FAERS Safety Report 6327579-7 (Version None)
Quarter: 2009Q3

REPORT INFORMATION
  Report Type: 
  Country: None (occurrence: None)
  Receive Date: 20090825
  Receipt Date: 20090817
  Transmission Date: 20100115
  Serious: Yes (Other)
  Sender: FDA-Public Use
  Company Number: US-ELI_LILLY_AND_COMPANY-US200908003913

PATIENT
  Sex: Male

DRUGS (3)
  1. HUMULIN 70/30 [Suspect]
     Dosage: 50 U, DAILY (1/D)
  2. HUMULIN 70/30 [Suspect]
     Dosage: 60 U, DAILY (1/D)
     Dates: start: 19990101
  3. LANTUS [Concomitant]

REACTIONS (7)
  - AMNESIA [None]
  - ARTHRITIS [None]
  - BLOOD GLUCOSE DECREASED [None]
  - BLOOD GLUCOSE INCREASED [None]
  - GOUT [None]
  - RENAL FAILURE CHRONIC [None]
  - VISUAL ACUITY REDUCED [None]
